FAERS Safety Report 7968137-8 (Version None)
Quarter: 2011Q4

REPORT INFORMATION
  Report Type: 
  Country: None (occurrence: None)
  Receive Date: 20111209
  Receipt Date: 20111125
  Transmission Date: 20120403
  Serious: Yes (Other)
  Sender: FDA-Public Use
  Company Number: PHHY2011BR104900

PATIENT
  Age: 70 Year
  Sex: Female

DRUGS (2)
  1. EXELON [Suspect]
     Dosage: 4.5 MG, 2 CAPSULES DAILY
     Route: 048
  2. EXELON [Suspect]
     Indication: MEMORY IMPAIRMENT
     Dosage: 3 MG, UNK
     Route: 048

REACTIONS (6)
  - NAUSEA [None]
  - FATIGUE [None]
  - SPINAL CORD DISORDER [None]
  - FEELING ABNORMAL [None]
  - GAIT DISTURBANCE [None]
  - SOMNOLENCE [None]
